FAERS Safety Report 8846096 (Version 1)
Quarter: 2012Q4

REPORT INFORMATION
  Report Type: 
  Country: DK (occurrence: DK)
  Receive Date: 20121017
  Receipt Date: 20121017
  Transmission Date: 20130627
  Serious: Yes (Other)
  Sender: FDA-Public Use
  Company Number: PHHY2012DK090622

PATIENT
  Age: 46 Year
  Sex: Female

DRUGS (2)
  1. METHOTREXATE [Suspect]
     Dosage: 7.4 mg
     Dates: start: 2010
  2. METHOTREXATE [Suspect]
     Dosage: 17.5 mg
     Dates: start: 2012

REACTIONS (1)
  - Lung neoplasm malignant [Unknown]
